FAERS Safety Report 4938562-8 (Version None)
Quarter: 2006Q1

REPORT INFORMATION
  Report Type: 
  Country: None (occurrence: None)
  Receive Date: 20060306
  Receipt Date: 20060223
  Transmission Date: 20060701
  Serious: Yes (Life-Threatening)
  Sender: FDA-Public Use
  Company Number: 2006027240

PATIENT
  Age: 3 Year
  Sex: Male

DRUGS (2)
  1. ZYRTEC [Suspect]
     Indication: RESPIRATORY DISORDER
  2. ALL OTHER THERAPEUTIC PRODUCTS (ALL OTHER THERAPEUTIC PRODUCTS) [Suspect]
     Indication: RESPIRATORY DISORDER

REACTIONS (1)
  - ARRHYTHMIA [None]
